FAERS Safety Report 11666652 (Version 1)
Quarter: 2015Q4

REPORT INFORMATION
  Report Type: Spontaneous
  Country: US (occurrence: US)
  Receive Date: 20151027
  Receipt Date: 20151027
  Transmission Date: 20160304
  Serious: No
  Sender: FDA-Public Use
  Company Number: US-ELI_LILLY_AND_COMPANY-US201002002124

PATIENT
  Sex: Female

DRUGS (3)
  1. OSCAL 500-D [Concomitant]
     Dosage: 500 MG, DAILY (1/D)
  2. FORTEO [Suspect]
     Active Substance: TERIPARATIDE
     Indication: OSTEOPOROSIS
     Dosage: UNK, UNKNOWN
  3. OSCAL 500-D [Concomitant]
     Dosage: 500 MG, 2/D

REACTIONS (2)
  - Blood calcium increased [Unknown]
  - Living in residential institution [Not Recovered/Not Resolved]

NARRATIVE: CASE EVENT DATE: 201001
